FAERS Safety Report 22097787 (Version 1)
Quarter: 2023Q1

REPORT INFORMATION
  Report Type: Report from Study
  Country: US (occurrence: US)
  Receive Date: 20230315
  Receipt Date: 20230315
  Transmission Date: 20230417
  Serious: Yes (Death)
  Sender: FDA-Public Use
  Company Number: US-PFIZER INC-202300104253

PATIENT
  Age: 57 Year
  Sex: Male

DRUGS (2)
  1. DILTIAZEM HYDROCHLORIDE [Suspect]
     Active Substance: DILTIAZEM HYDROCHLORIDE
     Dosage: UNK
  2. ACETONE [Suspect]
     Active Substance: ACETONE
     Dosage: UNK

REACTIONS (7)
  - Toxicity to various agents [Fatal]
  - Bradycardia [Fatal]
  - Respiratory depression [Fatal]
  - Depressed level of consciousness [Fatal]
  - Acute kidney injury [Fatal]
  - Cardiac arrest [Fatal]
  - Hypotension [Fatal]

NARRATIVE: CASE EVENT DATE: 20210101
